FAERS Safety Report 8078486-3 (Version None)
Quarter: 2012Q1

REPORT INFORMATION
  Report Type: 
  Country: None (occurrence: None)
  Receive Date: 20120127
  Receipt Date: 20110309
  Transmission Date: 20120608
  Serious: No
  Sender: FDA-Public Use
  Company Number: PR-ABBOTT-11P-131-0706509-00

PATIENT
  Sex: Female

DRUGS (6)
  1. HUMIRA [Suspect]
     Indication: PSORIATIC ARTHROPATHY
     Dosage: 1 PEN EVERY 15 DAYS
     Route: 058
     Dates: start: 20100101, end: 20100801
  2. CYMBALTA [Concomitant]
     Indication: FIBROMYALGIA
     Route: 048
  3. BUPROPION HYDROCHLORIDE [Concomitant]
     Indication: DEPRESSION
     Route: 048
  4. MOBIC [Concomitant]
     Indication: PAIN
     Dosage: AS NEEDED
     Route: 048
  5. METHOTREXATE [Concomitant]
     Indication: PSORIATIC ARTHROPATHY
     Dosage: 7.5MG WEEKLY;3 TABLETS WEEKLY
     Route: 048
  6. HUMIRA [Suspect]
     Dosage: 1 PEN EVERY 15 DAYS
     Route: 058
     Dates: start: 20110201

REACTIONS (2)
  - NAIL PSORIASIS [None]
  - URINARY TRACT INFECTION [None]
